FAERS Safety Report 15172192 (Version 1)
Quarter: 2018Q3

REPORT INFORMATION
  Report Type: Spontaneous
  Country: SE (occurrence: SE)
  Receive Date: 20180720
  Receipt Date: 20180720
  Transmission Date: 20181010
  Serious: Yes (Other)
  Sender: FDA-Public Use
  Company Number: SE-MYLANLABS-2018M1052924

PATIENT

DRUGS (3)
  1. METHOTREXATE. [Suspect]
     Active Substance: METHOTREXATE
     Dosage: 3 MG/M2, UNK, LOW DOSE (TWO SUBSEQUENT ADMINISTRATIONS)
     Route: 042
  2. METHOTREXATE. [Suspect]
     Active Substance: METHOTREXATE
     Indication: ACUTE LYMPHOCYTIC LEUKAEMIA
     Dosage: 5 MG/M2, UNK, HIGH DOSE
     Route: 042
  3. METHOTREXATE. [Suspect]
     Active Substance: METHOTREXATE
     Dosage: 5 MG/M2, UNK, FIVE MORE COURSES
     Route: 042

REACTIONS (3)
  - Anuria [Unknown]
  - Seizure [Unknown]
  - Blood creatinine increased [Recovered/Resolved]
